FAERS Safety Report 20509975 (Version 1)
Quarter: 2022Q1

REPORT INFORMATION
  Report Type: Spontaneous
  Country: US (occurrence: None)
  Receive Date: 20220224
  Receipt Date: 20220224
  Transmission Date: 20220423
  Serious: Yes (Death, Hospitalization, Other)
  Sender: FDA-Public Use
  Company Number: US-ROCHE-2993586

PATIENT
  Age: 58 Year
  Sex: Female

DRUGS (2)
  1. COTELLIC [Suspect]
     Active Substance: COBIMETINIB
     Indication: Malignant melanoma
     Dosage: DAILY FOR 21 DAYS , HOLD 7 DAYS THEN REPEAT CYCLE
     Route: 048
     Dates: start: 202101
  2. ZELBORAF [Suspect]
     Active Substance: VEMURAFENIB
     Indication: Malignant melanoma
     Route: 048
     Dates: start: 202101

REACTIONS (11)
  - Cerebral haemorrhage [Unknown]
  - Bedridden [Not Recovered/Not Resolved]
  - Death [Fatal]
  - Malignant melanoma [Fatal]
  - Drug hypersensitivity [Not Recovered/Not Resolved]
  - Vomiting [Unknown]
  - Blood pressure increased [Unknown]
  - Brain neoplasm [Unknown]
  - Ill-defined disorder [Unknown]
  - Eating disorder [Unknown]
  - Nervous system neoplasm [Fatal]

NARRATIVE: CASE EVENT DATE: 20211101
